FAERS Safety Report 6784695-3 (Version None)
Quarter: 2010Q2

REPORT INFORMATION
  Report Type: 
  Country: None (occurrence: None)
  Receive Date: 20100622
  Receipt Date: 20100614
  Transmission Date: 20101027
  Serious: Yes (Other)
  Sender: FDA-Public Use
  Company Number: IT-TEVA-237762ISR

PATIENT
  Age: 25 Year
  Sex: Male

DRUGS (2)
  1. METFORMIN [Suspect]
     Indication: HYPERINSULINAEMIA
     Dates: start: 20080601
  2. AMISULPRIDE [Interacting]
     Indication: MENTAL DISORDER

REACTIONS (3)
  - DRUG INTERACTION [None]
  - MUSCULAR WEAKNESS [None]
  - RHABDOMYOLYSIS [None]
